FAERS Safety Report 11718548 (Version 4)
Quarter: 2016Q1

REPORT INFORMATION
  Report Type: Spontaneous
  Country: GB (occurrence: GB)
  Receive Date: 20151110
  Receipt Date: 20160328
  Transmission Date: 20160525
  Serious: Yes (Disabling, Other)
  Sender: FDA-Public Use
  Company Number: GB-WATSON-2015-23771

PATIENT
  Age: 66 Year
  Sex: Female
  Weight: 63 kg

DRUGS (18)
  1. IBUPROFEN. [Concomitant]
     Active Substance: IBUPROFEN
     Dosage: 200 MG, TID
     Route: 048
     Dates: start: 20110325
  2. QUININE SULFATE. [Concomitant]
     Active Substance: QUININE SULFATE
     Indication: MUSCLE SPASMS
     Dosage: 200 MG, QPM
     Route: 065
     Dates: start: 20090406
  3. SERTRALINE [Suspect]
     Active Substance: SERTRALINE HYDROCHLORIDE
     Indication: DEPRESSION
     Dosage: 75 MG, DAILY
     Route: 048
     Dates: start: 20140729, end: 20141013
  4. IBUPROFEN. [Concomitant]
     Active Substance: IBUPROFEN
     Indication: FIBROMYALGIA
     Dosage: 100 G AS DIRECTED
     Route: 065
     Dates: start: 20120918
  5. SERTRALINE [Suspect]
     Active Substance: SERTRALINE HYDROCHLORIDE
     Dosage: 50 MG, DAILY
     Route: 048
     Dates: start: 20140604, end: 20140728
  6. SERTRALINE [Suspect]
     Active Substance: SERTRALINE HYDROCHLORIDE
     Dosage: UNK UNK, UNKNOWN
     Route: 048
     Dates: start: 2013
  7. LANSOPRAZOLE. [Concomitant]
     Active Substance: LANSOPRAZOLE
     Indication: ABDOMINAL DISCOMFORT
     Dosage: 15 MG, DAILY
     Route: 065
     Dates: start: 20091201
  8. ACICLOVIR [Concomitant]
     Active Substance: ACYCLOVIR
     Indication: PRODUCT USED FOR UNKNOWN INDICATION
     Dosage: 10 G, UNK
     Route: 065
     Dates: start: 20120328
  9. ATORVASTATIN [Concomitant]
     Active Substance: ATORVASTATIN
     Indication: MYOCARDIAL ISCHAEMIA
     Dosage: 5 MG, DAILY (1/2 X 10 MG, 1X/DAY)
     Route: 048
     Dates: start: 20030702
  10. FULTIUM [Concomitant]
     Active Substance: CHOLECALCIFEROL
     Indication: MYALGIA
     Dosage: 800 IU, DAILY
     Route: 048
     Dates: start: 20140129
  11. ASPIRIN. [Concomitant]
     Active Substance: ASPIRIN
     Indication: MYOCARDIAL ISCHAEMIA
     Dosage: 75 MG, QOD
     Route: 048
     Dates: start: 20020325
  12. ATORVASTATIN [Concomitant]
     Active Substance: ATORVASTATIN
     Indication: ANGINA PECTORIS
     Dosage: UNK
     Route: 065
  13. ZOPICLONE [Concomitant]
     Active Substance: ZOPICLONE
     Indication: PRODUCT USED FOR UNKNOWN INDICATION
     Dosage: 3.75 MG, QPM
     Route: 065
     Dates: start: 20140729
  14. BISOPROLOL [Concomitant]
     Active Substance: BISOPROLOL
     Indication: ANGINA PECTORIS
     Dosage: 2.5 MG, DAILY
     Route: 048
     Dates: start: 20070711
  15. FULTIUM [Concomitant]
     Active Substance: CHOLECALCIFEROL
     Indication: SKIN CANCER
     Dosage: UNK
     Route: 065
  16. GLYCERYL TRINITRATE [Concomitant]
     Active Substance: NITROGLYCERIN
     Indication: PRODUCT USED FOR UNKNOWN INDICATION
     Dosage: 400 UG, UNK
     Route: 060
  17. SERTRALINE [Suspect]
     Active Substance: SERTRALINE HYDROCHLORIDE
     Indication: STRESS
     Dosage: 50 MG, DAILY
     Route: 048
     Dates: start: 20141014, end: 20141203
  18. ASPIRIN. [Concomitant]
     Active Substance: ASPIRIN
     Indication: ANGINA PECTORIS
     Dosage: UNK
     Route: 065

REACTIONS (5)
  - Facial nerve disorder [Not Recovered/Not Resolved]
  - Eyelid ptosis [Not Recovered/Not Resolved]
  - Social problem [Unknown]
  - Feeling abnormal [Unknown]
  - Emotional distress [Not Recovered/Not Resolved]

NARRATIVE: CASE EVENT DATE: 201409
